FAERS Safety Report 16034633 (Version 1)
Quarter: 2019Q1

REPORT INFORMATION
  Report Type: Spontaneous
  Country: FR (occurrence: FR)
  Receive Date: 20190305
  Receipt Date: 20190305
  Transmission Date: 20190418
  Serious: Yes (Death, Hospitalization, Other)
  Sender: FDA-Public Use
  Company Number: FR-AUROBINDO-AUR-APL-2019-010636

PATIENT

DRUGS (2)
  1. IBUPROFEN FILM-COATED TABLET [Suspect]
     Active Substance: IBUPROFEN
     Indication: INFLUENZA LIKE ILLNESS
     Dosage: UNK
     Route: 065
  2. IBUPROFEN FILM-COATED TABLET [Suspect]
     Active Substance: IBUPROFEN
     Indication: SELF-MEDICATION

REACTIONS (32)
  - Thrombophlebitis [Fatal]
  - Necrosis [Fatal]
  - Respiratory rate increased [Unknown]
  - Lactic acidosis [Unknown]
  - Condition aggravated [Fatal]
  - Influenza [Unknown]
  - Skin lesion [Unknown]
  - C-reactive protein increased [Unknown]
  - Blood bilirubin increased [Unknown]
  - Spleen congestion [Fatal]
  - Blood lactate dehydrogenase increased [Unknown]
  - Lemierre syndrome [Fatal]
  - Pleurisy [Fatal]
  - Coagulopathy [Unknown]
  - Multiple organ dysfunction syndrome [Fatal]
  - Asthenia [Unknown]
  - Anaemia [Unknown]
  - Acute kidney injury [Unknown]
  - Hypotension [Unknown]
  - Blood lactic acid increased [Unknown]
  - Alveolitis [Fatal]
  - Shock [Fatal]
  - Dyspnoea [Unknown]
  - Acute hepatic failure [Unknown]
  - Vaginal discharge [Unknown]
  - Blood creatinine increased [Unknown]
  - Sepsis [Fatal]
  - Haemophagocytic lymphohistiocytosis [Fatal]
  - Productive cough [Unknown]
  - Respiratory distress [Unknown]
  - Vaginal oedema [Unknown]
  - Blood urea increased [Unknown]
